FAERS Safety Report 16180198 (Version 1)
Quarter: 2019Q2

REPORT INFORMATION
  Report Type: Spontaneous
  Country: US (occurrence: US)
  Receive Date: 20190307
  Receipt Date: 20190307
  Transmission Date: 20190711
  Serious: No
  Sender: FDA-Public Use
  Company Number: None

PATIENT
  Age: 64 Year
  Sex: Female

DRUGS (1)
  1. TALTZ [Suspect]
     Active Substance: IXEKIZUMAB
     Indication: PSORIASIS
     Dosage: ?          OTHER FREQUENCY:WK12, THEN MONTHLY;?
     Route: 058
     Dates: start: 201801

REACTIONS (4)
  - Gingival bleeding [None]
  - Chromaturia [None]
  - Urine odour abnormal [None]
  - Decreased appetite [None]
